FAERS Safety Report 9486105 (Version 1)
Quarter: 2013Q3

REPORT INFORMATION
  Report Type: Spontaneous
  Country: US (occurrence: None)
  Receive Date: 20130827
  Receipt Date: 20130827
  Transmission Date: 20140515
  Serious: Yes (Other)
  Sender: FDA-Public Use
  Company Number: None

PATIENT
  Age: 43 Year
  Sex: Female
  Weight: 77.57 kg

DRUGS (1)
  1. MIRENA IUD BAYER [Suspect]

REACTIONS (3)
  - Pain [None]
  - Haemorrhage [None]
  - Menorrhagia [None]
